FAERS Safety Report 8256503 (Version 7)
Quarter: 2014Q1

REPORT INFORMATION
  Report Type: Report from Study
  Country: KR (occurrence: KR)
  Receive Date: 20111121
  Receipt Date: 20140314
  Transmission Date: 20141002
  Serious: Yes (Hospitalization, Other)
  Sender: FDA-Public Use
  Company Number: KR-MPIJNJ-2011-05693

PATIENT
  Sex: 0

DRUGS (11)
  1. VELCADE [Suspect]
     Indication: PLASMA CELL MYELOMA
     Dosage: 1.3 MG/M2, UNK
     Route: 042
     Dates: start: 20110715, end: 20111118
  2. VELCADE [Suspect]
     Dosage: 1.0 MG/M2, UNK
     Route: 042
     Dates: start: 20111123, end: 20111123
  3. VELCADE [Suspect]
     Dosage: 1.3 MG/M2, UNK
     Route: 042
     Dates: start: 20111207, end: 20120828
  4. MELPHALAN [Suspect]
     Indication: PLASMA CELL MYELOMA
     Dosage: 9 MG/M2, UNK
     Route: 042
     Dates: start: 20110715, end: 20111014
  5. MELPHALAN [Suspect]
     Dosage: 9 MG/M2, UNK
     Route: 065
     Dates: start: 20111207, end: 20120803
  6. PREDNISOLONE [Suspect]
     Indication: PLASMA CELL MYELOMA
     Dosage: 60 MG/M2, UNK
     Route: 042
     Dates: start: 20110715, end: 20111014
  7. PREDNISOLONE [Suspect]
     Dosage: 60 MG/M2, UNK
     Route: 065
     Dates: start: 20111207, end: 20120803
  8. MUCOSTA [Concomitant]
     Dosage: UNK
     Route: 048
     Dates: start: 20110620
  9. CALTAN [Concomitant]
     Indication: SUPPLEMENTATION THERAPY
     Dosage: UNK
     Route: 048
     Dates: start: 20110805
  10. IRCODIN [Concomitant]
     Indication: ANALGESIC THERAPY
     Dosage: 5 MG, UNK
     Route: 048
     Dates: start: 20110621
  11. PARACETA [Concomitant]
     Indication: ANALGESIC THERAPY
     Dosage: UNK
     Route: 048
     Dates: start: 20111010

REACTIONS (6)
  - Bronchopneumonia [Recovered/Resolved]
  - Neuropathy peripheral [Recovered/Resolved]
  - Thrombocytopenia [Recovered/Resolved]
  - Abdominal pain lower [Recovered/Resolved]
  - Bronchitis [Recovered/Resolved]
  - Neutropenia [Recovered/Resolved]
